FAERS Safety Report 9904222 (Version 1)
Quarter: 2014Q1

REPORT INFORMATION
  Report Type: Other
  Country: ES (occurrence: ES)
  Receive Date: 20140218
  Receipt Date: 20140218
  Transmission Date: 20141002
  Serious: Yes (Hospitalization)
  Sender: FDA-Public Use
  Company Number: ES-ACTELION-A-CH2014-94939

PATIENT
  Sex: Male
  Weight: 1.61 kg

DRUGS (3)
  1. TRACLEER [Suspect]
     Indication: MATERNAL EXPOSURE BEFORE PREGNANCY
     Route: 050
  2. ACENOCOUMAROL [Concomitant]
     Indication: MATERNAL EXPOSURE BEFORE PREGNANCY
  3. EPOPROSTENOL [Concomitant]
     Indication: MATERNAL EXPOSURE BEFORE PREGNANCY
     Route: 042

REACTIONS (2)
  - Live birth [Unknown]
  - Maternal exposure before pregnancy [Unknown]
